FAERS Safety Report 16822138 (Version 1)
Quarter: 2019Q3

REPORT INFORMATION
  Report Type: Spontaneous
  Country: US (occurrence: US)
  Receive Date: 20190918
  Receipt Date: 20190918
  Transmission Date: 20191005
  Serious: No
  Sender: FDA-Public Use
  Company Number: US-ALLERGAN-1933420US

PATIENT
  Sex: Female

DRUGS (3)
  1. LINZESS [Suspect]
     Active Substance: LINACLOTIDE
     Indication: DRUG THERAPY
     Dosage: 145 ?G, BID
     Route: 048
     Dates: start: 201904
  2. UNSPECIFIED MUSCLE RELAXERS [Concomitant]
     Indication: CEREBROVASCULAR ACCIDENT
  3. UNSPECIFIED PAIN MEDICATIONS [Concomitant]
     Active Substance: UNSPECIFIED INGREDIENT
     Indication: CEREBROVASCULAR ACCIDENT

REACTIONS (5)
  - Inappropriate schedule of product administration [Unknown]
  - Product storage error [Unknown]
  - Product dispensing error [Unknown]
  - Product use in unapproved indication [Unknown]
  - Therapeutic product effect decreased [Unknown]
